FAERS Safety Report 8438104-9 (Version None)
Quarter: 2012Q2

REPORT INFORMATION
  Report Type: 
  Country: None (occurrence: None)
  Receive Date: 20120614
  Receipt Date: 20120613
  Transmission Date: 20120825
  Serious: Yes (Death)
  Sender: FDA-Public Use
  Company Number: US-MYLANLABS-2012S1009833

PATIENT
  Age: 72 Year
  Sex: Female
  Weight: 47.63 kg

DRUGS (13)
  1. CLOZAPINE [Suspect]
     Route: 048
     Dates: start: 20120403, end: 20120416
  2. NAMENDA [Concomitant]
  3. CLOZAPINE [Suspect]
     Indication: PSYCHOTIC DISORDER
     Route: 048
     Dates: start: 20120313, end: 20120402
  4. ARICEPT [Concomitant]
  5. MULTAQ [Concomitant]
  6. CELEBREX [Concomitant]
  7. CLOZAPINE [Suspect]
     Route: 048
     Dates: start: 20120417, end: 20120401
  8. SEROQUEL [Concomitant]
  9. LASIX [Concomitant]
  10. SINEMET [Concomitant]
     Dosage: 25/100  STRENGTH - REPORTED AS 10 TABLETS DAILY
  11. SYNTHROID [Concomitant]
     Dosage: ADMINISTER MON-FRI
  12. SINEMET [Concomitant]
     Dosage: CR 50MG/200MG
  13. PRILOSEC [Concomitant]

REACTIONS (1)
  - MYELODYSPLASTIC SYNDROME [None]
